FAERS Safety Report 7350258-4 (Version None)
Quarter: 2011Q1

REPORT INFORMATION
  Report Type: 
  Country: None (occurrence: None)
  Receive Date: 20110309
  Receipt Date: 20110309
  Transmission Date: 20110831
  Serious: Yes (Hospitalization)
  Sender: FDA-Public Use
  Company Number: None

PATIENT
  Age: 41 Year
  Sex: Female
  Weight: 67.2 kg

DRUGS (2)
  1. VORINOSTAT 300 MG PO BID DAYS 1-3 EACH WEEK [Suspect]
     Indication: BREAST CANCER
     Dosage: 300 MG BID DAYS 1-3 WEEKLY ORAL
     Route: 048
     Dates: start: 20101116, end: 20110217
  2. PACLITAXEL [Suspect]
     Indication: BREAST CANCER
     Dosage: 140 MG EVERY WEEK INTRAVENOUS
     Route: 042
     Dates: start: 20101116, end: 20110215

REACTIONS (6)
  - ASTHENIA [None]
  - RESPIRATORY DISTRESS [None]
  - PERICARDIAL EFFUSION [None]
  - MENTAL STATUS CHANGES [None]
  - NEOPLASM MALIGNANT [None]
  - CARDIAC TAMPONADE [None]
